FAERS Safety Report 20758861 (Version 2)
Quarter: 2022Q2

REPORT INFORMATION
  Report Type: Report from Study
  Country: CN (occurrence: CN)
  Receive Date: 20220427
  Receipt Date: 20220502
  Transmission Date: 20220721
  Serious: Yes (Hospitalization, Other)
  Sender: FDA-Public Use
  Company Number: CN-JNJFOC-20220434692

PATIENT
  Age: 64 Year
  Sex: Female
  Weight: 54 kg

DRUGS (31)
  1. CILTACABTAGENE AUTOLEUCEL [Suspect]
     Active Substance: CILTACABTAGENE AUTOLEUCEL
     Indication: Plasma cell myeloma refractory
     Dosage: 35.734725 X10^6 CAR-POSITIVE VIABLE T CELLS
     Route: 042
     Dates: start: 20220406, end: 20220406
  2. CYCLOPHOSPHAMIDE [Suspect]
     Active Substance: CYCLOPHOSPHAMIDE
     Indication: Plasma cell myeloma refractory
     Dosage: BRIDGING THERAPY
     Route: 065
     Dates: start: 20220225
  3. CYCLOPHOSPHAMIDE [Suspect]
     Active Substance: CYCLOPHOSPHAMIDE
     Dosage: CONDITIONING REGIMEN
     Route: 065
     Dates: start: 20220401, end: 20220403
  4. FLUDARABINE [Suspect]
     Active Substance: FLUDARABINE PHOSPHATE
     Indication: Plasma cell myeloma refractory
     Dosage: CONDITIONING REGIMEN
     Route: 065
     Dates: start: 20220401, end: 20220403
  5. CARFILZOMIB [Concomitant]
     Active Substance: CARFILZOMIB
     Indication: Plasma cell myeloma refractory
     Dosage: BRIDGING THERAPY
     Route: 065
     Dates: start: 20220225
  6. DEXAMETHASONE [Concomitant]
     Active Substance: DEXAMETHASONE
     Indication: Plasma cell myeloma refractory
     Dosage: BRIDGING THERAPY
     Route: 065
     Dates: start: 20220225
  7. FEBUXOSTAT [Concomitant]
     Active Substance: FEBUXOSTAT
     Indication: Product used for unknown indication
     Route: 065
     Dates: start: 20220401
  8. LOXOPROFEN [Concomitant]
     Active Substance: LOXOPROFEN
     Indication: Pyrexia
     Route: 065
     Dates: start: 20220415, end: 20220415
  9. LOXOPROFEN [Concomitant]
     Active Substance: LOXOPROFEN
     Route: 065
     Dates: start: 20220416
  10. ACETAMINOPHEN [Concomitant]
     Active Substance: ACETAMINOPHEN
     Indication: Pyrexia
     Route: 065
     Dates: start: 20220415, end: 20220415
  11. ACETAMINOPHEN [Concomitant]
     Active Substance: ACETAMINOPHEN
     Route: 065
     Dates: start: 20220416
  12. FUROSEMIDE [Concomitant]
     Active Substance: FUROSEMIDE
     Indication: Product used for unknown indication
     Route: 042
     Dates: start: 20220330, end: 20220420
  13. FUROSEMIDE [Concomitant]
     Active Substance: FUROSEMIDE
     Route: 065
     Dates: start: 20220414, end: 20220414
  14. TORSEMIDE [Concomitant]
     Active Substance: TORSEMIDE
     Indication: Product used for unknown indication
     Dosage: D9 (AFTER ALBUMIN)
     Route: 042
     Dates: start: 20220414
  15. TORSEMIDE [Concomitant]
     Active Substance: TORSEMIDE
     Dosage: D11
     Route: 042
     Dates: start: 20220416
  16. TORSEMIDE [Concomitant]
     Active Substance: TORSEMIDE
     Dosage: D12
     Route: 042
     Dates: start: 20220417
  17. TORSEMIDE [Concomitant]
     Active Substance: TORSEMIDE
     Dosage: D13
     Route: 042
     Dates: start: 20220418, end: 20220418
  18. TORSEMIDE [Concomitant]
     Active Substance: TORSEMIDE
     Dosage: D15 (AFTER ALBUMIN)
     Route: 042
     Dates: start: 20220418, end: 20220420
  19. PENICILLIN G [Concomitant]
     Active Substance: PENICILLIN G
     Indication: Product used for unknown indication
     Route: 065
  20. PIPERACILLIN SODIUM\TAZOBACTAM SODIUM [Concomitant]
     Active Substance: PIPERACILLIN SODIUM\TAZOBACTAM SODIUM
     Indication: Product used for unknown indication
     Route: 065
  21. ACYCLOVIR [Concomitant]
     Active Substance: ACYCLOVIR
     Indication: Product used for unknown indication
     Route: 065
  22. CEFTRIAXONE;TAZOBACTAM [Concomitant]
     Indication: Product used for unknown indication
     Route: 065
  23. LECITHIN [Concomitant]
     Active Substance: LECITHIN
     Indication: Product used for unknown indication
     Route: 065
  24. GSH [Concomitant]
     Indication: Product used for unknown indication
     Route: 065
  25. BERBERINE [Concomitant]
     Active Substance: BERBERINE
     Indication: Product used for unknown indication
     Route: 048
  26. RABEPRAZOLE [Concomitant]
     Active Substance: RABEPRAZOLE
     Indication: Product used for unknown indication
     Route: 048
  27. ALBUMIN HUMAN [Concomitant]
     Active Substance: ALBUMIN HUMAN
     Indication: Product used for unknown indication
     Route: 065
  28. HUMAN RED BLOOD CELL [Concomitant]
     Active Substance: HUMAN RED BLOOD CELL
     Indication: Product used for unknown indication
     Route: 042
     Dates: start: 20220417, end: 20220417
  29. PLATELETS [Concomitant]
     Active Substance: HUMAN PLATELET, ALLOGENIC
     Indication: Product used for unknown indication
     Route: 042
  30. CALCIUM GLUCONATE [Concomitant]
     Active Substance: CALCIUM GLUCONATE
     Indication: Product used for unknown indication
     Route: 065
  31. POTASSIUM CHLORIDE [Concomitant]
     Active Substance: POTASSIUM CHLORIDE
     Indication: Product used for unknown indication
     Route: 065

REACTIONS (1)
  - Acute kidney injury [Not Recovered/Not Resolved]

NARRATIVE: CASE EVENT DATE: 20220417
